FAERS Safety Report 4381129-3 (Version None)
Quarter: 2004Q2

REPORT INFORMATION
  Report Type: 
  Country: None (occurrence: None)
  Receive Date: 20040601
  Receipt Date: 20040316
  Transmission Date: 20050107
  Serious: No
  Sender: FDA-Public Use
  Company Number: FABR-10293

PATIENT
  Age: 30 Year
  Sex: Male
  Weight: 66.6788 kg

DRUGS (4)
  1. FABRAZYME [Suspect]
     Indication: FABRY'S DISEASE
     Dosage: 66 MG Q2WKS IV
     Route: 042
     Dates: start: 20030819
  2. BENADRYL [Concomitant]
  3. HYDROCORTISONE [Concomitant]
  4. ACETAMINOPHEN [Concomitant]

REACTIONS (3)
  - BLOOD PRESSURE DECREASED [None]
  - CHILLS [None]
  - NAUSEA [None]
